FAERS Safety Report 5793468-X (Version None)
Quarter: 2008Q2

REPORT INFORMATION
  Report Type: 
  Country: None (occurrence: None)
  Receive Date: 20080627
  Receipt Date: 20080617
  Transmission Date: 20081010
  Serious: Yes (Other)
  Sender: FDA-Public Use
  Company Number: US-JNJFOC-20080501014

PATIENT
  Sex: Male
  Weight: 82.1 kg

DRUGS (20)
  1. LEVAQUIN [Suspect]
     Indication: COUGH
     Route: 048
  2. LEVAQUIN [Suspect]
     Indication: BRONCHOPNEUMONIA
     Route: 048
  3. TUSSIONEX [Concomitant]
     Route: 048
  4. CAPOTEN [Concomitant]
     Route: 048
  5. LASIX [Concomitant]
     Route: 048
  6. DIGITEK [Concomitant]
     Route: 048
  7. SYNTHROID [Concomitant]
     Route: 048
  8. MICRO-K [Concomitant]
     Route: 048
  9. ZETIA [Concomitant]
     Route: 048
  10. PEPCID [Concomitant]
     Route: 048
  11. ALLOPURINOL [Concomitant]
     Route: 048
  12. NITROGLYCERIN [Concomitant]
  13. ASTELIN [Concomitant]
  14. SYMBICORT [Concomitant]
  15. LOTRISONE [Concomitant]
  16. ASPIRIN [Concomitant]
     Route: 048
  17. PULMICORT-100 [Concomitant]
     Route: 055
  18. DUONEB [Concomitant]
  19. NASACORT [Concomitant]
     Route: 045
  20. MULTI-VITAMIN [Concomitant]

REACTIONS (3)
  - DRUG HYPERSENSITIVITY [None]
  - HAEMOPTYSIS [None]
  - STEVENS-JOHNSON SYNDROME [None]
